FAERS Safety Report 12049874 (Version 3)
Quarter: 2018Q1

REPORT INFORMATION
  Report Type: Spontaneous
  Country: US (occurrence: US)
  Receive Date: 20160209
  Receipt Date: 20180126
  Transmission Date: 20180508
  Serious: No
  Sender: FDA-Public Use
  Company Number: US-ABBVIE-15P-163-1420710-00

PATIENT

DRUGS (12)
  1. METHOTREXATE. [Suspect]
     Active Substance: METHOTREXATE
     Indication: OSTEOARTHRITIS
  2. TRAMADOL. [Suspect]
     Active Substance: TRAMADOL
     Indication: FIBROMYALGIA
  3. TRAMADOL. [Suspect]
     Active Substance: TRAMADOL
     Indication: JUVENILE IDIOPATHIC ARTHRITIS
     Route: 065
  4. TRAMADOL. [Suspect]
     Active Substance: TRAMADOL
     Indication: OSTEOARTHRITIS
  5. HUMIRA [Suspect]
     Active Substance: ADALIMUMAB
     Indication: JUVENILE IDIOPATHIC ARTHRITIS
     Route: 058
  6. HYDROCODONE [Suspect]
     Active Substance: HYDROCODONE
     Indication: FIBROMYALGIA
     Route: 065
  7. HUMIRA [Suspect]
     Active Substance: ADALIMUMAB
     Indication: OSTEOARTHRITIS
  8. METHOTREXATE. [Suspect]
     Active Substance: METHOTREXATE
     Indication: JUVENILE IDIOPATHIC ARTHRITIS
     Route: 065
  9. METHOTREXATE. [Suspect]
     Active Substance: METHOTREXATE
     Indication: FIBROMYALGIA
  10. HYDROCODONE [Suspect]
     Active Substance: HYDROCODONE
     Indication: JUVENILE IDIOPATHIC ARTHRITIS
  11. HYDROCODONE [Suspect]
     Active Substance: HYDROCODONE
     Indication: OSTEOARTHRITIS
  12. HUMIRA [Suspect]
     Active Substance: ADALIMUMAB
     Indication: FIBROMYALGIA

REACTIONS (13)
  - Loss of personal independence in daily activities [Unknown]
  - Pain [Unknown]
  - Gait disturbance [Unknown]
  - Osteoarthritis [Not Recovered/Not Resolved]
  - Initial insomnia [Unknown]
  - Juvenile idiopathic arthritis [Unknown]
  - Injection site pain [Unknown]
  - Motion sickness [Unknown]
  - Fatigue [Unknown]
  - Depression [Not Recovered/Not Resolved]
  - Wrong technique in product usage process [Unknown]
  - Seasonal affective disorder [Unknown]
  - Fibromyalgia [Not Recovered/Not Resolved]
